FAERS Safety Report 11870586 (Version 1)
Quarter: 2015Q4

REPORT INFORMATION
  Report Type: Spontaneous
  Country: US (occurrence: US)
  Receive Date: 20151228
  Receipt Date: 20151228
  Transmission Date: 20160305
  Serious: Yes (Other)
  Sender: FDA-Public Use
  Company Number: US-SANOFI-AVENTIS-2012SA082736

PATIENT
  Age: 60 Year
  Sex: Female

DRUGS (2)
  1. PLAVIX [Suspect]
     Active Substance: CLOPIDOGREL BISULFATE
     Indication: CEREBROVASCULAR ACCIDENT
     Route: 065
  2. ASPIRIN. [Concomitant]
     Active Substance: ASPIRIN
     Indication: HEADACHE

REACTIONS (4)
  - Cerebrovascular accident [Unknown]
  - Seizure [Unknown]
  - Muscle spasms [Unknown]
  - Haemorrhage [Unknown]

NARRATIVE: CASE EVENT DATE: 200707
